FAERS Safety Report 4292907-3 (Version None)
Quarter: 2004Q1

REPORT INFORMATION
  Report Type: 
  Country: None (occurrence: None)
  Receive Date: 20040212
  Receipt Date: 20030723
  Transmission Date: 20041129
  Serious: No
  Sender: FDA-Public Use
  Company Number: US-GLAXOSMITHKLINE-A0418005A

PATIENT
  Age: 36 Year
  Sex: Female

DRUGS (3)
  1. PAXIL [Suspect]
     Indication: DEPRESSION
     Route: 048
     Dates: start: 20021101
  2. ORTHO TRI-CYCLEN [Concomitant]
  3. ALLEGRA [Concomitant]

REACTIONS (2)
  - DIZZINESS [None]
  - VERTIGO [None]
